FAERS Safety Report 5579991-1 (Version None)
Quarter: 2008Q1

REPORT INFORMATION
  Report Type: 
  Country: None (occurrence: None)
  Receive Date: 20080103
  Receipt Date: 20071226
  Transmission Date: 20080703
  Serious: Yes (Hospitalization)
  Sender: FDA-Public Use
  Company Number: US-JNJFOC-20071206053

PATIENT
  Sex: Female
  Weight: 113.4 kg

DRUGS (7)
  1. REMICADE [Suspect]
     Indication: DRUG USE FOR UNKNOWN INDICATION
     Route: 042
  2. CELEBREX [Concomitant]
     Indication: ARTHRITIS
     Dosage: FOR 2-3 YRS
  3. ZOLOFT [Concomitant]
     Indication: STRESS
  4. ZOLOFT [Concomitant]
     Indication: DEPRESSION
     Dosage: FOR 2-3 YRS.
  5. VALIUM [Concomitant]
     Indication: STRESS
  6. VALIUM [Concomitant]
     Indication: DEPRESSION
     Dosage: FOR 2-3 YRS
  7. PROTONIX [Concomitant]
     Indication: GASTROOESOPHAGEAL REFLUX DISEASE
     Dosage: FOR 2-3 YRS

REACTIONS (1)
  - IMMUNE SYSTEM DISORDER [None]
